FAERS Safety Report 4719849-0 (Version None)
Quarter: 2005Q3

REPORT INFORMATION
  Report Type: 
  Country: None (occurrence: None)
  Receive Date: 20050721
  Receipt Date: 20041202
  Transmission Date: 20060218
  Serious: Yes (Other)
  Sender: FDA-Public Use
  Company Number: US-GLAXOSMITHKLINE-A0536805A

PATIENT
  Age: 57 Year
  Sex: Female

DRUGS (15)
  1. AVANDIA [Suspect]
     Dosage: 4MG TWICE PER DAY
     Route: 048
     Dates: start: 20000406, end: 20000614
  2. AVANDAMET [Suspect]
     Route: 048
     Dates: start: 20030302, end: 20031006
  3. ZOCOR [Concomitant]
  4. LASIX [Concomitant]
     Indication: HYPERTENSION
     Route: 048
  5. POTASSIUM CHLORIDE [Concomitant]
     Indication: DRUG USE FOR UNKNOWN INDICATION
     Route: 048
  6. ACTOS [Concomitant]
     Route: 048
     Dates: start: 20000614
  7. REGULAR INSULIN [Concomitant]
  8. ASPIRIN [Concomitant]
     Indication: DRUG USE FOR UNKNOWN INDICATION
     Route: 048
  9. ATENOLOL [Concomitant]
     Indication: DRUG USE FOR UNKNOWN INDICATION
     Dosage: 200MG TWICE PER DAY
     Route: 048
  10. ISMO [Concomitant]
     Indication: DRUG USE FOR UNKNOWN INDICATION
     Dosage: 60MG PER DAY
     Route: 048
  11. MAVIK [Concomitant]
     Indication: DRUG USE FOR UNKNOWN INDICATION
     Dosage: 2MG PER DAY
     Route: 048
  12. PLETAL [Concomitant]
     Dosage: 100MG TWICE PER DAY
     Route: 048
  13. SYNTHROID [Concomitant]
     Indication: HYPOTHYROIDISM
     Dosage: 50MCG PER DAY
     Route: 048
  14. PLAVIX [Concomitant]
     Indication: DRUG USE FOR UNKNOWN INDICATION
     Dosage: 75MG PER DAY
     Route: 048
  15. NITROGLYCERIN [Concomitant]
     Indication: CHEST PAIN

REACTIONS (1)
  - CARDIAC FAILURE CONGESTIVE [None]
